FAERS Safety Report 8853042 (Version 4)
Quarter: 2012Q4

REPORT INFORMATION
  Report Type: 
  Country: US (occurrence: US)
  Receive Date: 20121022
  Receipt Date: 20121218
  Transmission Date: 20130627
  Serious: Yes (Other)
  Sender: FDA-Public Use
  Company Number: US-PFIZER INC-2012262087

PATIENT
  Sex: Male

DRUGS (4)
  1. GABAPENTIN [Suspect]
     Indication: PERIPHERAL NERVE COMPRESSION
     Dosage: 100 mg, 3x/day
  2. GABAPENTIN [Suspect]
     Indication: ARTHRITIS
     Dosage: 100 mg, 3x/day
     Dates: start: 2012, end: 2012
  3. GABAPENTIN [Suspect]
     Indication: SPINAL COLUMN STENOSIS
  4. GABAPENTIN [Suspect]
     Indication: RESTLESS LEG SYNDROME

REACTIONS (8)
  - Surgery [Unknown]
  - Drug ineffective [Unknown]
  - Headache [Recovered/Resolved]
  - Diarrhoea [Unknown]
  - Nervousness [Unknown]
  - Insomnia [Recovered/Resolved]
  - Abdominal discomfort [Recovered/Resolved]
  - Off label use [Unknown]
